FAERS Safety Report 4897501-9 (Version None)
Quarter: 2006Q1

REPORT INFORMATION
  Report Type: 
  Country: None (occurrence: None)
  Receive Date: 20060130
  Receipt Date: 20060130
  Transmission Date: 20060701
  Serious: Yes (Other)
  Sender: FDA-Public Use
  Company Number: None

PATIENT
  Age: 73 Year
  Sex: Female

DRUGS (9)
  1. BONIVA [Suspect]
     Indication: OSTEOPOROSIS
     Dosage: 150 MG PO
     Route: 048
     Dates: start: 20051201
  2. DETROL [Concomitant]
  3. ALBUTEROL [Concomitant]
  4. BETOPTIZ [Concomitant]
  5. BETOPTIC [Concomitant]
  6. TRAVATAN [Concomitant]
  7. VOLTAN [Concomitant]
  8. MULTIPLE VITAMIN [Concomitant]
  9. CALCIUM GLUCONATE [Concomitant]

REACTIONS (1)
  - URTICARIA [None]
